FAERS Safety Report 4535140-X (Version None)
Quarter: 2004Q4

REPORT INFORMATION
  Report Type: 
  Country: None (occurrence: None)
  Receive Date: 20041214
  Receipt Date: 20040819
  Transmission Date: 20050328
  Serious: No
  Sender: FDA-Public Use
  Company Number: 2004225649US

PATIENT
  Age: 54 Year
  Sex: Female
  Weight: 79.4 kg

DRUGS (12)
  1. BEXTRA [Suspect]
     Indication: INFLAMMATION LOCALISED
     Dosage: 20 UNK, ORAL
     Route: 048
     Dates: start: 20040721, end: 20040723
  2. INSULIN (INSULIN) TABLET [Concomitant]
  3. ENALAPRIL (ENALAPRIL) [Concomitant]
  4. GEMFIBROZIL [Concomitant]
  5. VERAPAMIL [Concomitant]
  6. COZAAR [Concomitant]
  7. LOVASTATIN [Concomitant]
  8. FUROSEMIDE [Concomitant]
  9. AMITRIPTYLINE [Concomitant]
  10. VITAMIN E [Concomitant]
  11. CALCIUM GLUCONATE [Concomitant]
  12. ASPIRIN [Concomitant]

REACTIONS (4)
  - ASTHENIA [None]
  - COLD SWEAT [None]
  - HYPERHIDROSIS [None]
  - NAUSEA [None]
